FAERS Safety Report 11836292 (Version 2)
Quarter: 2016Q1

REPORT INFORMATION
  Report Type: Spontaneous
  Country: TH (occurrence: TH)
  Receive Date: 20151215
  Receipt Date: 20160331
  Transmission Date: 20160525
  Serious: Yes (Death)
  Sender: FDA-Public Use
  Company Number: TH-ACTELION-A-CH2015-128720

PATIENT
  Age: 42 Year
  Sex: Female
  Weight: 50 kg

DRUGS (2)
  1. SILDENAFIL. [Concomitant]
     Active Substance: SILDENAFIL
     Indication: PULMONARY ARTERIAL HYPERTENSION
     Dosage: 20 MG, TID
     Route: 048
  2. TRACLEER [Suspect]
     Active Substance: BOSENTAN
     Indication: PULMONARY ARTERIAL HYPERTENSION
     Dosage: 125 MG, BID
     Route: 048

REACTIONS (6)
  - Disease progression [Fatal]
  - Blood pressure decreased [Fatal]
  - Cardiac arrest [Fatal]
  - Right ventricular failure [Fatal]
  - Pulmonary arterial hypertension [Fatal]
  - Systemic lupus erythematosus [Fatal]
